FAERS Safety Report 8114493-X (Version None)
Quarter: 2012Q1

REPORT INFORMATION
  Report Type: 
  Country: None (occurrence: None)
  Receive Date: 20120206
  Receipt Date: 20120131
  Transmission Date: 20120608
  Serious: No
  Sender: FDA-Public Use
  Company Number: US-BIOGENIDEC-2012BI003799

PATIENT
  Age: 31 Year
  Sex: Female

DRUGS (4)
  1. XANAX [Concomitant]
     Indication: PREMEDICATION
     Dates: start: 20110401
  2. PRILOSEC [Concomitant]
     Indication: PREMEDICATION
     Dates: start: 20110401
  3. AVONEX [Suspect]
     Indication: MULTIPLE SCLEROSIS
     Route: 030
     Dates: start: 20110427, end: 20120125
  4. IBUPROFEN [Concomitant]
     Indication: PREMEDICATION
     Dates: start: 20110401

REACTIONS (9)
  - VISUAL IMPAIRMENT [None]
  - PANIC ATTACK [None]
  - CHEST PAIN [None]
  - INFLUENZA LIKE ILLNESS [None]
  - FEAR [None]
  - CHROMATURIA [None]
  - OEDEMA PERIPHERAL [None]
  - TACHYCARDIA [None]
  - URINE ODOUR ABNORMAL [None]
